FAERS Safety Report 4619338-8 (Version None)
Quarter: 2005Q2

REPORT INFORMATION
  Report Type: 
  Country: None (occurrence: None)
  Receive Date: 20050321
  Receipt Date: 20040318
  Transmission Date: 20051028
  Serious: Yes (Life-Threatening, Hospitalization)
  Sender: FDA-Public Use
  Company Number: 2004-03-1449

PATIENT
  Age: 31 Year
  Sex: Female
  Weight: 94.3482 kg

DRUGS (6)
  1. PEG-INTRON [Suspect]
     Indication: HEPATITIS C
     Dosage: 150 MCG QW SUBCUTANEOUS
     Route: 058
     Dates: start: 20030301, end: 20040114
  2. REBETOL [Suspect]
     Indication: HEPATITIS C
     Dosage: 1200 MG QD ORAL
     Route: 048
     Dates: start: 20030301, end: 20040114
  3. AMBIEN [Concomitant]
  4. PAXIL [Concomitant]
  5. CENTRIM [Concomitant]
  6. BENADRYL [Concomitant]

REACTIONS (2)
  - DEPRESSION [None]
  - SUICIDE ATTEMPT [None]
